FAERS Safety Report 19010866 (Version 1)
Quarter: 2021Q1

REPORT INFORMATION
  Report Type: Spontaneous
  Country: JP (occurrence: JP)
  Receive Date: 20210315
  Receipt Date: 20210315
  Transmission Date: 20210420
  Serious: Yes (Hospitalization)
  Sender: FDA-Public Use
  Company Number: JP-GLAXOSMITHKLINE-JP2021059276

PATIENT
  Age: 79 Year
  Sex: Female

DRUGS (1)
  1. SAMTIREL [Suspect]
     Active Substance: ATOVAQUONE
     Dosage: 2 DF, WE
     Route: 048

REACTIONS (2)
  - Product use issue [Unknown]
  - Hospitalisation [Unknown]
